FAERS Safety Report 6203229 (Version 3)
Quarter: 2017Q3

REPORT INFORMATION
  Report Type: Spontaneous
  Country: BR (occurrence: BR)
  Receive Date: 20061227
  Receipt Date: 20170920
  Transmission Date: 20171128
  Serious: Yes (Other)
  Sender: FDA-Public Use
  Company Number: BR-PFIZER INC-2006152429

PATIENT
  Age: 23 Year
  Sex: Female

DRUGS (2)
  1. MISOPROSTOL. [Suspect]
     Active Substance: MISOPROSTOL
     Indication: ABORTION
     Dosage: 400 UG, UNK
     Route: 048
     Dates: start: 200611
  2. MISOPROSTOL. [Suspect]
     Active Substance: MISOPROSTOL
     Dosage: 400 UG, UNK
     Route: 067
     Dates: start: 200611

REACTIONS (2)
  - Drug ineffective [Not Recovered/Not Resolved]
  - Premature separation of placenta [Not Recovered/Not Resolved]

NARRATIVE: CASE EVENT DATE: 200611
